FAERS Safety Report 6295390-1 (Version None)
Quarter: 2009Q3

REPORT INFORMATION
  Report Type: 
  Country: None (occurrence: None)
  Receive Date: 20090803
  Receipt Date: 20090724
  Transmission Date: 20100115
  Serious: Yes (Other)
  Sender: FDA-Public Use
  Company Number: AU-JNJCH-2009020211

PATIENT
  Age: 4 Year
  Sex: Female

DRUGS (1)
  1. PURELL VITAMIN E [Suspect]
     Indication: DRUG USE FOR UNKNOWN INDICATION
     Dosage: TEXT:TWO MOUTHFULS
     Route: 048
     Dates: start: 20090724, end: 20090724

REACTIONS (3)
  - ACCIDENTAL EXPOSURE [None]
  - GAIT DISTURBANCE [None]
  - POISONING [None]
